FAERS Safety Report 16881739 (Version 2)
Quarter: 2019Q4

REPORT INFORMATION
  Report Type: Spontaneous
  Country: GB (occurrence: US)
  Receive Date: 20191003
  Receipt Date: 20191004
  Transmission Date: 20200122
  Serious: Yes (Death, Hospitalization)
  Sender: FDA-Public Use
  Company Number: GB-009507513-1909GBR008736

PATIENT
  Age: 2 Month
  Sex: Male
  Weight: 2.16 kg

DRUGS (3)
  1. THERAPY UNSPECIFIED [Suspect]
     Active Substance: UNSPECIFIED INGREDIENT
     Dosage: UNK
  2. RIBAVIRIN. [Suspect]
     Active Substance: RIBAVIRIN
     Indication: PRODUCT USED FOR UNKNOWN INDICATION
     Dosage: 6 GRAM X 1, PHARMACEUTICAL FORM: POWDER FOR NEBULISER SOLUTION
     Dates: start: 19971024, end: 19971024
  3. ERYTHROMYCIN. [Concomitant]
     Active Substance: ERYTHROMYCIN
     Dosage: UNK
     Dates: start: 19971022

REACTIONS (2)
  - Multiple organ dysfunction syndrome [Fatal]
  - Apnoea [Fatal]

NARRATIVE: CASE EVENT DATE: 19971025
